FAERS Safety Report 4712997-0 (Version None)
Quarter: 2005Q3

REPORT INFORMATION
  Report Type: 
  Country: None (occurrence: None)
  Receive Date: 20050711
  Receipt Date: 20050517
  Transmission Date: 20060218
  Serious: Yes (Death)
  Sender: FDA-Public Use
  Company Number: 11208

PATIENT
  Age: 58 Year
  Sex: Male

DRUGS (14)
  1. METHOTREXATE [Suspect]
     Indication: GASTRIC CANCER
     Dosage: 170 MG WEEKLY IV
     Route: 042
     Dates: start: 20050428, end: 20050511
  2. FLUOROURACIL [Suspect]
     Indication: GASTRIC CANCER
     Dosage: 1 G WEEKLY IV
     Route: 042
     Dates: start: 20050428, end: 20050511
  3. LEUCOVORIN [Concomitant]
  4. DEXAMETHASONE [Concomitant]
  5. CAMOSTAT MESILATE [Concomitant]
  6. HERBAL EXTRACTS [Concomitant]
  7. ENZYMES [Concomitant]
  8. CYANOBALAMIN WITH INTRINSIC FACTOR CO [Concomitant]
  9. ACETAZOLAMIDE [Concomitant]
  10. GLYCYRON [Concomitant]
  11. CAMOSTAT MESILATE [Concomitant]
  12. JUZEN-TAIHO-TO [Concomitant]
  13. DIGESTER [Concomitant]
  14. DIGESTER [Concomitant]

REACTIONS (13)
  - BLOOD UREA INCREASED [None]
  - C-REACTIVE PROTEIN INCREASED [None]
  - CARDIO-RESPIRATORY ARREST [None]
  - CLOSTRIDIUM COLITIS [None]
  - DIABETES MELLITUS [None]
  - DRUG LEVEL DECREASED [None]
  - DRUG LEVEL INCREASED [None]
  - GENERAL PHYSICAL HEALTH DETERIORATION [None]
  - GRANULOCYTOPENIA [None]
  - HAEMOGLOBIN DECREASED [None]
  - ORAL INTAKE REDUCED [None]
  - PYREXIA [None]
  - THROMBOCYTOPENIA [None]
